FAERS Safety Report 11789403 (Version 1)
Quarter: 2015Q4

REPORT INFORMATION
  Report Type: Spontaneous
  Country: US (occurrence: None)
  Receive Date: 20151130
  Receipt Date: 20151130
  Transmission Date: 20160305
  Serious: Yes (Life-Threatening, Hospitalization)
  Sender: FDA-Public Use
  Company Number: None

PATIENT
  Age: 60 Year
  Sex: Male
  Weight: 160 kg

DRUGS (1)
  1. LEVOFLOXACIN 750MG [Suspect]
     Active Substance: LEVOFLOXACIN
     Indication: PNEUMONIA
     Dosage: Q48HRS
     Route: 042
     Dates: start: 20151116, end: 20151120

REACTIONS (2)
  - Rhabdomyolysis [None]
  - Acute respiratory distress syndrome [None]

NARRATIVE: CASE EVENT DATE: 20151116
